FAERS Safety Report 23269042 (Version 1)
Quarter: 2023Q4

REPORT INFORMATION
  Report Type: Spontaneous
  Country: US (occurrence: US)
  Receive Date: 20231206
  Receipt Date: 20231206
  Transmission Date: 20240110
  Serious: Yes (Hospitalization)
  Sender: FDA-Public Use
  Company Number: US-KAMADA LIMITED-2023-KAM-US000269

PATIENT

DRUGS (2)
  1. HUMAN RABIES VIRUS IMMUNE GLOBULIN [Suspect]
     Active Substance: HUMAN RABIES VIRUS IMMUNE GLOBULIN
     Dosage: UNK
     Route: 065
  2. RABIES VACCINE NOS [Suspect]
     Active Substance: RABIES VACCINE
     Indication: Immunisation

REACTIONS (5)
  - Serum sickness-like reaction [Unknown]
  - Bile duct stenosis [Recovering/Resolving]
  - Blood loss anaemia [Unknown]
  - Lymphadenopathy [Unknown]
  - Hepatitis cholestatic [Unknown]
